FAERS Safety Report 9820524 (Version 2)
Quarter: 2014Q1

REPORT INFORMATION
  Report Type: Spontaneous
  Country: US (occurrence: US)
  Receive Date: 20140116
  Receipt Date: 20140116
  Transmission Date: 20141002
  Serious: Yes (Hospitalization)
  Sender: FDA-Public Use
  Company Number: US-B.I. PHARMACEUTICALS,INC./RIDGEFIELD-2013-BI-23026BP

PATIENT
  Sex: Female
  Weight: 95.25 kg

DRUGS (14)
  1. PRADAXA [Suspect]
     Indication: ATRIAL FIBRILLATION
     Dates: start: 20120121, end: 20120905
  2. NORVASC [Concomitant]
  3. AVAPRO [Concomitant]
  4. CATAPRES [Concomitant]
  5. ELAVIL [Concomitant]
  6. HYDRALAZINE [Concomitant]
  7. HYDROXYCHLOROQUINE [Concomitant]
  8. LABETALOL [Concomitant]
  9. METFORMIN [Concomitant]
  10. PREDNISONE [Concomitant]
  11. PROTONIX [Concomitant]
  12. SIMVASTATIN [Concomitant]
  13. SPIRONOLACTONE [Concomitant]
  14. TIAZAC [Concomitant]

REACTIONS (4)
  - Gastrointestinal haemorrhage [Recovered/Resolved]
  - Coagulopathy [Unknown]
  - Renal failure acute [Recovered/Resolved]
  - Atrial fibrillation [Unknown]
